FAERS Safety Report 25212640 (Version 1)
Quarter: 2025Q2

REPORT INFORMATION
  Report Type: Spontaneous
  Country: CZ (occurrence: CZ)
  Receive Date: 20250418
  Receipt Date: 20250418
  Transmission Date: 20250717
  Serious: Yes (Other)
  Sender: UCB
  Company Number: CZ-UCBSA-2025021571

PATIENT
  Age: 50 Year
  Sex: Male

DRUGS (3)
  1. LACOSAMIDE [Suspect]
     Active Substance: LACOSAMIDE
     Indication: Partial seizures
  2. BRIVARACETAM [Suspect]
     Active Substance: BRIVARACETAM
     Indication: Partial seizures
  3. VALPROATE [Suspect]
     Active Substance: VALPROIC ACID
     Indication: Partial seizures

REACTIONS (2)
  - Seizure [Recovered/Resolved]
  - Multiple-drug resistance [Unknown]
